FAERS Safety Report 13265839 (Version 2)
Quarter: 2017Q2

REPORT INFORMATION
  Report Type: Report from Study
  Country: CN (occurrence: CN)
  Receive Date: 20170223
  Receipt Date: 20170501
  Transmission Date: 20170830
  Serious: Yes (Hospitalization, Other)
  Sender: FDA-Public Use
  Company Number: PHHY2017CN025690

PATIENT
  Age: 51 Year
  Sex: Male
  Weight: 83.5 kg

DRUGS (2)
  1. TELBIVUDINE [Suspect]
     Active Substance: TELBIVUDINE
     Indication: CHRONIC HEPATITIS B
     Dosage: 600 MG, QD
     Route: 048
     Dates: start: 20150123, end: 20150304
  2. THYMOPENTIN [Concomitant]
     Active Substance: THYMOPENTIN
     Indication: PROPHYLAXIS
     Dosage: 15 G, TID
     Route: 048
     Dates: start: 20150123

REACTIONS (2)
  - Hepatocellular carcinoma [Recovering/Resolving]
  - Ascites [Recovered/Resolved]

NARRATIVE: CASE EVENT DATE: 20150304
